FAERS Safety Report 15373445 (Version 3)
Quarter: 2018Q4

REPORT INFORMATION
  Report Type: Not Available
  Country: US (occurrence: US)
  Receive Date: 20180912
  Receipt Date: 20181121
  Transmission Date: 20190204
  Serious: No
  Sender: FDA-Public Use
  Company Number: US-NEUROCRINE BIOSCIENCES INC.-2018NBI02560

PATIENT
  Sex: Female

DRUGS (1)
  1. INGREZZA [Suspect]
     Active Substance: VALBENAZINE
     Indication: PRODUCT USED FOR UNKNOWN INDICATION
     Route: 048
     Dates: start: 20180731

REACTIONS (5)
  - Intentional product use issue [Unknown]
  - Amnesia [Unknown]
  - Tremor [Unknown]
  - Drug effect incomplete [None]
  - Pain [Unknown]

NARRATIVE: CASE EVENT DATE: 2018
